FAERS Safety Report 8416202-3 (Version None)
Quarter: 2012Q2

REPORT INFORMATION
  Report Type: 
  Country: None (occurrence: None)
  Receive Date: 20120606
  Receipt Date: 20111107
  Transmission Date: 20120825
  Serious: Yes (Hospitalization)
  Sender: FDA-Public Use
  Company Number: US-ROCHE-338011

PATIENT
  Age: 56 Year
  Sex: Female
  Weight: 62.3 kg

DRUGS (7)
  1. PACLITAXEL [Suspect]
     Indication: BREAST CANCER
     Dosage: STARTING ON WEEK 13, FOR 12 WEEKS
     Route: 042
     Dates: start: 20021114, end: 20030213
  2. HYDROCHLOROTHIAZDE TAB [Suspect]
     Indication: PRODUCT USED FOR UNKNOWN INDICATION
     Route: 065
  3. TAMOXIFEN CITRATE [Suspect]
     Indication: BREAST CANCER
     Route: 048
  4. HERCEPTIN [Suspect]
     Dosage: MAINTENANCE DOSE
     Route: 042
  5. CYCLOPHOSPHAMIDE [Suspect]
     Indication: BREAST CANCER
     Dosage: ADMINISTERED ON DAY 1 OF A 21 DAY CYCLE FOR 4 CYCLES
     Route: 042
     Dates: start: 20020829, end: 20021107
  6. DOXORUBICIN HYDROCHLORIDE [Suspect]
     Indication: BREAST CANCER
     Dosage: ADMINISTERED ON DAY 1 OF A 21 DAY CYCLE FOR 4 CYCLES
     Route: 042
     Dates: start: 20020829, end: 20021107
  7. HERCEPTIN [Suspect]
     Indication: BREAST CANCER
     Dosage: STARTING ON WEEK 25, LOADING DOSE
     Route: 042
     Dates: start: 20021107, end: 20030213

REACTIONS (2)
  - PANCREATITIS [None]
  - HYPERTRIGLYCERIDAEMIA [None]
